FAERS Safety Report 14045417 (Version 1)
Quarter: 2017Q4

REPORT INFORMATION
  Report Type: Spontaneous
  Country: US (occurrence: US)
  Receive Date: 20171005
  Receipt Date: 20171005
  Transmission Date: 20180321
  Serious: No
  Sender: FDA-Public Use
  Company Number: US-INDIVIOR LIMITED-INDV-093570-2016

PATIENT
  Age: 38 Year
  Sex: Female

DRUGS (2)
  1. XANAX [Suspect]
     Active Substance: ALPRAZOLAM
     Indication: PRODUCT USED FOR UNKNOWN INDICATION
     Dosage: UNK
     Route: 065
  2. SUBOXONE [Suspect]
     Active Substance: BUPRENORPHINE HYDROCHLORIDE\NALOXONE HYDROCHLORIDE
     Indication: DRUG USE DISORDER
     Dosage: 2 OR 3 DOSES UNK
     Route: 060

REACTIONS (6)
  - Drug dependence [Unknown]
  - Euphoric mood [Unknown]
  - Somnolence [Unknown]
  - Drug diversion [Recovered/Resolved]
  - Road traffic accident [Recovered/Resolved]
  - Intentional underdose [Recovered/Resolved]
